FAERS Safety Report 25251278 (Version 1)
Quarter: 2025Q2

REPORT INFORMATION
  Report Type: Spontaneous
  Country: US (occurrence: None)
  Receive Date: 20250429
  Receipt Date: 20250429
  Transmission Date: 20250716
  Serious: No
  Sender: FDA-CTU
  Company Number: None

PATIENT
  Age: 48 Year
  Sex: Female

DRUGS (1)
  1. BIMZELX [Suspect]
     Active Substance: BIMEKIZUMAB-BKZX
     Indication: Psoriatic arthropathy
     Dosage: OTHER FREQUENCY : ONCE EVERY 4 WEEKS;?
     Route: 058
     Dates: start: 20250226

REACTIONS (1)
  - Urticaria [None]

NARRATIVE: CASE EVENT DATE: 20250429
